FAERS Safety Report 18596182 (Version 25)
Quarter: 2025Q3

REPORT INFORMATION
  Report Type: Report from Study
  Country: US (occurrence: US)
  Receive Date: 20201209
  Receipt Date: 20250924
  Transmission Date: 20251021
  Serious: Yes (Hospitalization, Other)
  Sender: TAKEDA
  Company Number: US-TAKEDA-2020TUS053782

PATIENT
  Age: 62 Year
  Sex: Female
  Weight: 63.039 kg

DRUGS (46)
  1. HUMAN IMMUNOGLOBULIN G [Suspect]
     Active Substance: HUMAN IMMUNOGLOBULIN G
     Indication: Primary immunodeficiency syndrome
  2. HUMAN IMMUNOGLOBULIN G [Suspect]
     Active Substance: HUMAN IMMUNOGLOBULIN G
     Indication: Immune system disorder
     Dosage: 8 GRAM, 1/WEEK
  3. HUMAN IMMUNOGLOBULIN G [Suspect]
     Active Substance: HUMAN IMMUNOGLOBULIN G
     Indication: Hypergammaglobulinaemia
  4. ACETAMINOPHEN [Concomitant]
     Active Substance: ACETAMINOPHEN
  5. TEZSPIRE [Concomitant]
     Active Substance: TEZEPELUMAB-EKKO
  6. DIPHENHYDRAMINE [Concomitant]
     Active Substance: DIPHENHYDRAMINE
  7. Lmx [Concomitant]
  8. EPINEPHRINE [Concomitant]
     Active Substance: EPINEPHRINE
  9. WELLBUTRIN [Concomitant]
     Active Substance: BUPROPION HYDROCHLORIDE
  10. TEZEPELUMAB [Concomitant]
     Active Substance: TEZEPELUMAB
  11. BACTRIM [Concomitant]
     Active Substance: SULFAMETHOXAZOLE\TRIMETHOPRIM
  12. MUPIROCIN [Concomitant]
     Active Substance: MUPIROCIN
     Indication: Product used for unknown indication
  13. AZITHROMYCIN [Concomitant]
     Active Substance: AZITHROMYCIN
  14. PREDNISONE [Concomitant]
     Active Substance: PREDNISONE
  15. ORENCIA [Concomitant]
     Active Substance: ABATACEPT
  16. SINGULAIR [Concomitant]
     Active Substance: MONTELUKAST SODIUM
  17. EFFEXOR [Concomitant]
     Active Substance: VENLAFAXINE HYDROCHLORIDE
  18. PROTONIX [Concomitant]
     Active Substance: PANTOPRAZOLE SODIUM
  19. RESTASIS [Concomitant]
     Active Substance: CYCLOSPORINE
  20. DIOVAN [Concomitant]
     Active Substance: VALSARTAN
  21. ARAVA [Concomitant]
     Active Substance: LEFLUNOMIDE
  22. SYMBICORT [Concomitant]
     Active Substance: BUDESONIDE\FORMOTEROL FUMARATE DIHYDRATE
  23. FLUTICASONE PROPIONATE [Concomitant]
     Active Substance: FLUTICASONE PROPIONATE
  24. SPIRIVA [Concomitant]
     Active Substance: TIOTROPIUM BROMIDE MONOHYDRATE
  25. CYCLOBENZAPRINE [Concomitant]
     Active Substance: CYCLOBENZAPRINE
  26. VITAMIN D2 [Concomitant]
     Active Substance: ERGOCALCIFEROL
  27. Potassium Citrate Citric Acid [Concomitant]
  28. AZELASTINE HYDROCHLORIDE [Concomitant]
     Active Substance: AZELASTINE HYDROCHLORIDE
  29. MELOXICAM [Concomitant]
     Active Substance: MELOXICAM
  30. BENZOYL PEROXIDE\CLINDAMYCIN PHOSPHATE [Concomitant]
     Active Substance: BENZOYL PEROXIDE\CLINDAMYCIN PHOSPHATE
  31. METOPROLOL SUCCINATE [Concomitant]
     Active Substance: METOPROLOL SUCCINATE
  32. FLONASE [Concomitant]
     Active Substance: FLUTICASONE PROPIONATE
  33. METOPROLOL [Concomitant]
     Active Substance: METOPROLOL
  34. VITAMIN D [Concomitant]
     Active Substance: VITAMIN D NOS
  35. DIPHENHYDRAMINE HYDROCHLORIDE [Concomitant]
     Active Substance: DIPHENHYDRAMINE HYDROCHLORIDE
  36. ACARBOSE [Concomitant]
     Active Substance: ACARBOSE
  37. TRICOR [Concomitant]
     Active Substance: FENOFIBRATE
  38. TRAZODONE HCL [Concomitant]
     Active Substance: TRAZODONE HYDROCHLORIDE
  39. AMLODIPINE BESYLATE [Concomitant]
     Active Substance: AMLODIPINE BESYLATE
  40. XHANCE [Concomitant]
     Active Substance: FLUTICASONE PROPIONATE
  41. ZYRTEC [Concomitant]
     Active Substance: CETIRIZINE HYDROCHLORIDE
  42. ABILIFY [Concomitant]
     Active Substance: ARIPIPRAZOLE
  43. BREZTRI [Concomitant]
     Active Substance: BUDESONIDE\FORMOTEROL\GLYCOPYRROLATE
  44. IPRATROPIUM BROMIDE [Concomitant]
     Active Substance: IPRATROPIUM BROMIDE
  45. LAMICTAL [Concomitant]
     Active Substance: LAMOTRIGINE
  46. ATORVASTATIN CALCIUM [Concomitant]
     Active Substance: ATORVASTATIN CALCIUM

REACTIONS (25)
  - Gastrointestinal disorder [Unknown]
  - Intestinal obstruction [Unknown]
  - Nephrolithiasis [Unknown]
  - Pneumonia [Unknown]
  - Heart rate increased [Unknown]
  - Injection site irritation [Unknown]
  - Injection site discharge [Unknown]
  - Infusion site pain [Recovered/Resolved]
  - Eye infection [Recovered/Resolved]
  - Bronchitis [Recovered/Resolved]
  - Product dose omission issue [Unknown]
  - Seasonal allergy [Unknown]
  - Respiratory tract infection [Unknown]
  - COVID-19 [Recovering/Resolving]
  - Infection [Unknown]
  - Inappropriate schedule of product administration [Unknown]
  - Gastrointestinal bacterial infection [Unknown]
  - Infusion site rash [Unknown]
  - Oral candidiasis [Unknown]
  - Sinusitis [Recovered/Resolved]
  - Influenza [Unknown]
  - Infusion site mass [Not Recovered/Not Resolved]
  - Infusion site urticaria [Unknown]
  - Infusion site pruritus [Unknown]
  - Asthma [Unknown]

NARRATIVE: CASE EVENT DATE: 20240120
